FAERS Safety Report 13892029 (Version 1)
Quarter: 2017Q3

REPORT INFORMATION
  Report Type: Spontaneous
  Country: US (occurrence: US)
  Receive Date: 20170822
  Receipt Date: 20170822
  Transmission Date: 20171127
  Serious: No
  Sender: FDA-Public Use
  Company Number: US-JNJFOC-20170723480

PATIENT
  Sex: Male

DRUGS (2)
  1. DARZALEX [Suspect]
     Active Substance: DARATUMUMAB
     Indication: PLASMA CELL MYELOMA
     Dosage: MOST RECENT ON 29-JUN-2017; MAINTENANCE TREATMENT
     Route: 042
  2. OPDIVO [Concomitant]
     Active Substance: NIVOLUMAB
     Indication: PLASMA CELL MYELOMA

REACTIONS (1)
  - Weight decreased [Unknown]
